FAERS Safety Report 8356375-4 (Version None)
Quarter: 2012Q2

REPORT INFORMATION
  Report Type: 
  Country: None (occurrence: None)
  Receive Date: 20120510
  Receipt Date: 20120424
  Transmission Date: 20120825
  Serious: Yes (Other)
  Sender: FDA-Public Use
  Company Number: FK201201220

PATIENT
  Age: 41 Year
  Sex: Male

DRUGS (1)
  1. METHYLPREDNISOLONE [Suspect]
     Indication: KIDNEY TRANSPLANT REJECTION
     Dosage: 3 BOLI OF 500 MG

REACTIONS (5)
  - EXTRAPULMONARY TUBERCULOSIS [None]
  - INFECTION [None]
  - GRANULOMA [None]
  - DYSPHONIA [None]
  - LARYNGITIS [None]
